FAERS Safety Report 10971842 (Version 1)
Quarter: 2015Q1

REPORT INFORMATION
  Report Type: Spontaneous
  Country: US (occurrence: None)
  Receive Date: 20150330
  Receipt Date: 20150330
  Transmission Date: 20150721
  Serious: Yes (Other)
  Sender: FDA-Public Use
  Company Number: None

PATIENT
  Age: 63 Year
  Sex: Female
  Weight: 71.67 kg

DRUGS (13)
  1. SAVEKKA [Concomitant]
  2. FIBERCON [Concomitant]
     Active Substance: CALCIUM POLYCARBOPHIL
  3. PRILOSEC [Concomitant]
     Active Substance: OMEPRAZOLE MAGNESIUM
  4. VITAMIN D3 [Concomitant]
     Active Substance: CHOLECALCIFEROL
  5. MULTIVITS [Concomitant]
  6. LIDODERM [Concomitant]
     Active Substance: LIDOCAINE
  7. CA WITH D [Concomitant]
  8. XIFAXAN [Suspect]
     Active Substance: RIFAXIMIN
     Indication: DIARRHOEA
     Dosage: 550 MG 1 TWICE DAY BY MOUTH
     Route: 048
     Dates: start: 20150220, end: 20150226
  9. MAGNESIUM CITRATE. [Concomitant]
     Active Substance: MAGNESIUM CITRATE
  10. CARDIZEM [Concomitant]
     Active Substance: DILTIAZEM HYDROCHLORIDE
  11. KCL [Concomitant]
     Active Substance: POTASSIUM CHLORIDE
  12. DYAZIDE [Concomitant]
     Active Substance: HYDROCHLOROTHIAZIDE\TRIAMTERENE
  13. ESTRACE [Concomitant]
     Active Substance: ESTRADIOL

REACTIONS (3)
  - Skin exfoliation [None]
  - Sunburn [None]
  - Rash [None]

NARRATIVE: CASE EVENT DATE: 20150225
